FAERS Safety Report 5745339-2 (Version None)
Quarter: 2008Q2

REPORT INFORMATION
  Report Type: 
  Country: None (occurrence: None)
  Receive Date: 20080521
  Receipt Date: 20080515
  Transmission Date: 20081010
  Serious: Yes (Death)
  Sender: FDA-Public Use
  Company Number: RU-MERCK-0805RUS00004

PATIENT
  Age: 68 Year
  Sex: Female

DRUGS (1)
  1. ZOCOR [Suspect]
     Indication: HYPERTENSION
     Route: 048

REACTIONS (1)
  - HAEMORRHAGIC STROKE [None]
